FAERS Safety Report 20644455 (Version 1)
Quarter: 2022Q1

REPORT INFORMATION
  Report Type: Spontaneous
  Country: DK (occurrence: DK)
  Receive Date: 20220328
  Receipt Date: 20220328
  Transmission Date: 20220423
  Serious: Yes (Disabling, Other)
  Sender: FDA-Public Use
  Company Number: DK-Fresenius Kabi-FK202203536

PATIENT
  Age: 38 Year
  Sex: Male

DRUGS (6)
  1. DEXAMETHASONE [Suspect]
     Active Substance: DEXAMETHASONE
     Indication: Precursor T-lymphoblastic lymphoma/leukaemia recurrent
     Route: 065
  2. NELARABINE [Suspect]
     Active Substance: NELARABINE
     Indication: Precursor T-lymphoblastic lymphoma/leukaemia recurrent
     Route: 065
  3. DARATUMUMAB [Suspect]
     Active Substance: DARATUMUMAB
     Indication: Precursor T-lymphoblastic lymphoma/leukaemia recurrent
     Route: 042
  4. PEGASPARGASE [Suspect]
     Active Substance: PEGASPARGASE
     Indication: Precursor T-lymphoblastic lymphoma/leukaemia recurrent
     Route: 030
  5. PEGFILGRASTIM [Suspect]
     Active Substance: PEGFILGRASTIM
     Indication: Precursor T-lymphoblastic lymphoma/leukaemia recurrent
     Route: 058
  6. CYCLOPHOSPHAMIDE [Suspect]
     Active Substance: CYCLOPHOSPHAMIDE
     Indication: Precursor T-lymphoblastic lymphoma/leukaemia recurrent
     Route: 065

REACTIONS (5)
  - Myelosuppression [Unknown]
  - Peripheral sensory neuropathy [Unknown]
  - Febrile neutropenia [Unknown]
  - Nervous system disorder [Recovering/Resolving]
  - Asthenia [Unknown]
